FAERS Safety Report 24210417 (Version 2)
Quarter: 2024Q3

REPORT INFORMATION
  Report Type: Report from Study
  Country: ES (occurrence: ES)
  Receive Date: 20240814
  Receipt Date: 20240819
  Transmission Date: 20241017
  Serious: Yes (Other)
  Sender: SK LIFE SCIENCE
  Company Number: ES-ACRAF SpA-2024-034817

PATIENT

DRUGS (7)
  1. XCOPRI [Suspect]
     Active Substance: CENOBAMATE
     Indication: Epilepsy
     Dosage: 50 MG,1 D
     Route: 048
  2. XCOPRI [Suspect]
     Active Substance: CENOBAMATE
     Dosage: 150 MG,1 D
     Route: 048
     Dates: start: 20240718
  3. BRIVIACT [Concomitant]
     Active Substance: BRIVARACETAM
     Indication: Product used for unknown indication
     Dosage: UNK
     Route: 065
  4. ESLICARBAZEPINE ACETATE [Concomitant]
     Active Substance: ESLICARBAZEPINE ACETATE
     Indication: Product used for unknown indication
     Dosage: UNK
     Route: 065
  5. RIVOTRIL [Concomitant]
     Active Substance: CLONAZEPAM
     Indication: Product used for unknown indication
     Dosage: UNK
     Route: 065
  6. VALIUM [Concomitant]
     Active Substance: DIAZEPAM
     Indication: Product used for unknown indication
     Dosage: (10 MG,1 D)
     Route: 065
  7. VALIUM [Concomitant]
     Active Substance: DIAZEPAM
     Dosage: DOSE OF VALIUM WAS REDUCED FROM 10 TO 5 MG/DAY BECAUSE IT WAS CAUSING SLEEPINESS.
     Route: 065

REACTIONS (8)
  - Loss of consciousness [Recovered/Resolved]
  - Off label use [Not Recovered/Not Resolved]
  - Fall [Recovered/Resolved]
  - Memory impairment [Not Recovered/Not Resolved]
  - Dizziness [Not Recovered/Not Resolved]
  - Balance disorder [Not Recovered/Not Resolved]
  - Vomiting [Recovering/Resolving]
  - Asthenia [Not Recovered/Not Resolved]

NARRATIVE: CASE EVENT DATE: 20240718
